FAERS Safety Report 20004467 (Version 4)
Quarter: 2022Q2

REPORT INFORMATION
  Report Type: Other
  Country: AR (occurrence: AR)
  Receive Date: 20211028
  Receipt Date: 20220405
  Transmission Date: 20220721
  Serious: Yes (Hospitalization, Other)
  Sender: FDA-Public Use
  Company Number: AR-002147023-PHHY2018AR192226

PATIENT
  Age: 78 Year
  Sex: Female

DRUGS (3)
  1. XOLAIR [Suspect]
     Active Substance: OMALIZUMAB
     Indication: Asthma
     Route: 065
     Dates: start: 20180801
  2. XOLAIR [Suspect]
     Active Substance: OMALIZUMAB
     Route: 058
     Dates: start: 20180801, end: 20210729
  3. XOLAIR [Suspect]
     Active Substance: OMALIZUMAB
     Route: 058

REACTIONS (16)
  - Dyspnoea [Recovering/Resolving]
  - Blood pressure increased [Recovering/Resolving]
  - Fear [Recovering/Resolving]
  - Respiratory tract infection [Unknown]
  - Asthmatic crisis [Unknown]
  - Respiratory tract congestion [Unknown]
  - Nasopharyngitis [Unknown]
  - Feeling abnormal [Unknown]
  - Ear discomfort [Unknown]
  - Sensitivity to weather change [Unknown]
  - Haematoma [Unknown]
  - Abdominal discomfort [Recovering/Resolving]
  - Hypersensitivity [Unknown]
  - Pain [Unknown]
  - Fatigue [Unknown]
  - Swelling [Unknown]

NARRATIVE: CASE EVENT DATE: 20181001
